FAERS Safety Report 17704680 (Version 1)
Quarter: 2020Q2

REPORT INFORMATION
  Report Type: Spontaneous
  Country: US (occurrence: US)
  Receive Date: 20200424
  Receipt Date: 20200424
  Transmission Date: 20200714
  Serious: No
  Sender: FDA-Public Use
  Company Number: US-TORRENT-00010177

PATIENT
  Age: 69 Year
  Sex: Female
  Weight: 63 kg

DRUGS (5)
  1. MONTELUKAST SODIUM IR TABLETS [Suspect]
     Active Substance: MONTELUKAST SODIUM
     Indication: ASTHMA
     Dosage: ONE PILL, OD, AT NIGHT
     Route: 048
     Dates: start: 202001, end: 2020
  2. SUDAFED [Concomitant]
     Active Substance: PSEUDOEPHEDRINE HYDROCHLORIDE
     Indication: PNEUMONIA
     Dosage: UNKNOWN
  3. MEBRYL [Concomitant]
     Indication: LUNG DISORDER
     Dosage: UNKNOWN
  4. MONTELUKAST [Concomitant]
     Active Substance: MONTELUKAST SODIUM
     Indication: BRONCHITIS CHRONIC
     Dosage: UNKNOWN
  5. HYDROXYCHLOROQUINE [Concomitant]
     Active Substance: HYDROXYCHLOROQUINE
     Indication: ARTHRITIS
     Dosage: UNKNOWN

REACTIONS (5)
  - Product quality issue [Unknown]
  - Product odour abnormal [Unknown]
  - Malaise [Unknown]
  - Drug ineffective [Unknown]
  - Product taste abnormal [Unknown]

NARRATIVE: CASE EVENT DATE: 201912
